FAERS Safety Report 4420769-X (Version None)
Quarter: 2004Q3

REPORT INFORMATION
  Report Type: 
  Country: None (occurrence: None)
  Receive Date: 20040809
  Receipt Date: 20040519
  Transmission Date: 20050211
  Serious: No
  Sender: FDA-Public Use
  Company Number: US-GLAXOSMITHKLINE-A0511456A

PATIENT
  Age: 55 Year
  Sex: Male

DRUGS (2)
  1. PAXIL [Suspect]
     Indication: ILL-DEFINED DISORDER
     Dosage: 40MG PER DAY
     Route: 048
  2. HYDROCODONE [Concomitant]

REACTIONS (3)
  - ANGER [None]
  - DIZZINESS [None]
  - DRUG WITHDRAWAL SYNDROME [None]
